FAERS Safety Report 16844828 (Version 3)
Quarter: 2020Q1

REPORT INFORMATION
  Report Type: Spontaneous
  Country: US (occurrence: US)
  Receive Date: 20190924
  Receipt Date: 20200227
  Transmission Date: 20200409
  Serious: No
  Sender: FDA-Public Use
  Company Number: US-PFIZER INC-2019252842

PATIENT
  Age: 90 Year
  Sex: Female
  Weight: 58 kg

DRUGS (3)
  1. LYRICA [Suspect]
     Active Substance: PREGABALIN
     Indication: NEUROPATHY PERIPHERAL
     Dosage: 250 MG, DAILY (1 CAPSULE FIVE TIMES A DAY BY MOUTH)
     Route: 048
  2. BASAGLAR [Concomitant]
     Active Substance: INSULIN GLARGINE
     Indication: DIABETES MELLITUS
     Dosage: 20 MG, 1X/DAY(BY INJECTION)
  3. SYNTHROID [Concomitant]
     Active Substance: LEVOTHYROXINE SODIUM
     Dosage: UNK (88 MCG BY MOUTH, ONCE A DAY EXCEPT SUNDAY)
     Route: 048

REACTIONS (2)
  - Intentional product misuse [Unknown]
  - Fluid retention [Unknown]
